FAERS Safety Report 16701930 (Version 2)
Quarter: 2019Q3

REPORT INFORMATION
  Report Type: Report from Study
  Country: None (occurrence: US)
  Receive Date: 20190814
  Receipt Date: 20190819
  Transmission Date: 20191004
  Serious: Yes (Other)
  Sender: FDA-Public Use
  Company Number: US-ABBVIE-19K-163-2881342-00

PATIENT
  Age: 26 Year
  Sex: Female

DRUGS (2)
  1. FINASTERIDE. [Concomitant]
     Active Substance: FINASTERIDE
     Indication: PRODUCT USED FOR UNKNOWN INDICATION
  2. HUMIRA [Suspect]
     Active Substance: ADALIMUMAB
     Indication: HIDRADENITIS
     Route: 058
     Dates: start: 201810

REACTIONS (6)
  - Cyst [Not Recovered/Not Resolved]
  - Smear cervix abnormal [Unknown]
  - Therapeutic product effect incomplete [Unknown]
  - Precancerous cells present [Unknown]
  - Papilloma viral infection [Recovered/Resolved]
  - Papilloma viral infection [Not Recovered/Not Resolved]

NARRATIVE: CASE EVENT DATE: 201810
